FAERS Safety Report 13948306 (Version 1)
Quarter: 2017Q3

REPORT INFORMATION
  Report Type: Spontaneous
  Country: US (occurrence: None)
  Receive Date: 20170907
  Receipt Date: 20170907
  Transmission Date: 20171128
  Serious: No
  Sender: FDA-Public Use
  Company Number: None

PATIENT
  Age: 75 Year
  Sex: Female

DRUGS (1)
  1. NORTHERA [Suspect]
     Active Substance: DROXIDOPA
     Indication: ORTHOSTATIC HYPOTENSION
     Route: 048
     Dates: start: 20170719

REACTIONS (4)
  - Lethargy [None]
  - Disorientation [None]
  - Blood pressure fluctuation [None]
  - Movement disorder [None]

NARRATIVE: CASE EVENT DATE: 20170906
